FAERS Safety Report 10079027 (Version 1)
Quarter: 2014Q2

REPORT INFORMATION
  Report Type: Spontaneous
  Country: BR (occurrence: BR)
  Receive Date: 20140415
  Receipt Date: 20140415
  Transmission Date: 20141212
  Serious: Yes (Other)
  Sender: FDA-Public Use
  Company Number: BR-JNJFOC-20140407682

PATIENT
  Age: 58 Year
  Sex: Female

DRUGS (10)
  1. REMICADE [Suspect]
     Indication: COLITIS
     Route: 042
     Dates: start: 20140205
  2. REMICADE [Suspect]
     Indication: COLITIS
     Route: 042
     Dates: start: 2011
  3. TEGRETOL [Concomitant]
     Indication: CEREBROVASCULAR ACCIDENT
     Route: 065
  4. BACLOFEN [Concomitant]
     Indication: MUSCLE RELAXANT THERAPY
     Route: 065
  5. ARADOIS [Concomitant]
     Indication: BLOOD PRESSURE
     Route: 065
  6. PAROXETINE [Concomitant]
     Indication: ANXIETY
     Route: 065
  7. ONGLYZA [Concomitant]
     Indication: DIABETES MELLITUS
     Route: 065
  8. ACETYLSALICYLIC ACID [Concomitant]
     Route: 065
  9. ROSUVASTATIN [Concomitant]
     Indication: BLOOD CHOLESTEROL
     Route: 065
  10. VITAMINS NOS [Concomitant]
     Route: 065

REACTIONS (2)
  - Herpes zoster [Recovered/Resolved]
  - Dermatitis [Recovered/Resolved]
